FAERS Safety Report 9103304 (Version 1)
Quarter: 2013Q1

REPORT INFORMATION
  Report Type: Spontaneous
  Country: ZA (occurrence: ZA)
  Receive Date: 20130219
  Receipt Date: 20130219
  Transmission Date: 20140127
  Serious: Yes (Hospitalization)
  Sender: FDA-Public Use
  Company Number: ZA-JNJFOC-20130204051

PATIENT
  Sex: Male

DRUGS (1)
  1. REVELLEX [Suspect]
     Indication: CROHN^S DISEASE
     Route: 042
     Dates: start: 20121109

REACTIONS (1)
  - Sinusitis [Unknown]
